FAERS Safety Report 25810621 (Version 1)
Quarter: 2025Q3

REPORT INFORMATION
  Report Type: Spontaneous
  Country: EU (occurrence: EU)
  Receive Date: 20250917
  Receipt Date: 20250917
  Transmission Date: 20251020
  Serious: Yes (Other)
  Sender: TEVA
  Company Number: None

PATIENT
  Age: 81 Year
  Sex: Male

DRUGS (1)
  1. NAPROXEN [Suspect]
     Active Substance: NAPROXEN
     Indication: Pain
     Dosage: 2X PD 500 MG, TABLET MSR / BRAND NAME NOT SPECIFIED
     Route: 048
     Dates: start: 20250903

REACTIONS (1)
  - Hallucination [Not Recovered/Not Resolved]
